FAERS Safety Report 6392135-1 (Version None)
Quarter: 2009Q4

REPORT INFORMATION
  Report Type: 
  Country: None (occurrence: None)
  Receive Date: 20091007
  Receipt Date: 20091002
  Transmission Date: 20100525
  Serious: Yes (Hospitalization)
  Sender: FDA-Public Use
  Company Number: DE-BRISTOL-MYERS SQUIBB COMPANY-14805121

PATIENT
  Age: 38 Year
  Sex: Male
  Weight: 121 kg

DRUGS (5)
  1. ABILIFY [Suspect]
     Indication: SCHIZOAFFECTIVE DISORDER
     Dosage: 10MG FROM 23SEP-29SEP09
     Route: 048
     Dates: start: 20090918, end: 20090929
  2. RISPERDAL CONSTA [Suspect]
     Indication: SCHIZOAFFECTIVE DISORDER
  3. LEVOMEPROMAZINE MALEATE [Concomitant]
  4. SOLIAN [Concomitant]
  5. NEUROLEPTICS [Concomitant]

REACTIONS (2)
  - HALLUCINATION, AUDITORY [None]
  - PSYCHOTIC DISORDER [None]
